FAERS Safety Report 13381851 (Version 1)
Quarter: 2017Q1

REPORT INFORMATION
  Report Type: Spontaneous
  Country: US (occurrence: US)
  Receive Date: 20170329
  Receipt Date: 20170329
  Transmission Date: 20170429
  Serious: Yes (Life-Threatening)
  Sender: FDA-Public Use
  Company Number: None

PATIENT
  Age: 66 Year
  Sex: Female
  Weight: 67.5 kg

DRUGS (10)
  1. TRAZODONE [Suspect]
     Active Substance: TRAZODONE HYDROCHLORIDE
     Indication: INSOMNIA
     Dosage: ?          QUANTITY:1 TABLET(S);?
     Route: 048
  2. AMBIEN [Concomitant]
     Active Substance: ZOLPIDEM TARTRATE
  3. WELLBUTRIN [Concomitant]
     Active Substance: BUPROPION HYDROCHLORIDE
  4. TRAZODONE [Suspect]
     Active Substance: TRAZODONE HYDROCHLORIDE
     Indication: DEPRESSION
     Dosage: ?          QUANTITY:1 TABLET(S);?
     Route: 048
  5. ANTIVAN [Concomitant]
  6. VITAMIN D [Concomitant]
     Active Substance: CHOLECALCIFEROL
  7. CARCINIA [Concomitant]
  8. NORCO [Concomitant]
     Active Substance: ACETAMINOPHEN\HYDROCODONE BITARTRATE
  9. FLUTICASONE NASAL SPRAY [Concomitant]
     Active Substance: FLUTICASONE
  10. ^TOTAL^ OMEGA 3^S [Concomitant]

REACTIONS (15)
  - Oropharyngeal pain [None]
  - Pain [None]
  - Eye pain [None]
  - Feeling abnormal [None]
  - Palpitations [None]
  - Restlessness [None]
  - Balance disorder [None]
  - Chills [None]
  - Hot flush [None]
  - Vision blurred [None]
  - Pain in jaw [None]
  - Initial insomnia [None]
  - Hangover [None]
  - Headache [None]
  - Nightmare [None]

NARRATIVE: CASE EVENT DATE: 20170328
